FAERS Safety Report 6398698-4 (Version None)
Quarter: 2009Q4

REPORT INFORMATION
  Report Type: 
  Country: None (occurrence: None)
  Receive Date: 20091013
  Receipt Date: 20091001
  Transmission Date: 20100525
  Serious: Yes (Hospitalization, Other)
  Sender: FDA-Public Use
  Company Number: AT-ELI_LILLY_AND_COMPANY-AT200909006658

PATIENT
  Age: 24 Year
  Sex: Female

DRUGS (16)
  1. ZYPREXA [Suspect]
     Dosage: 15 MG, DAILY (1/D)
     Dates: start: 20090101, end: 20090215
  2. ZYPREXA [Suspect]
     Dosage: 10 MG, DAILY (1/D)
     Dates: start: 20090216, end: 20090217
  3. ZYPREXA [Suspect]
     Dosage: 5 MG, DAILY (1/D)
     Dates: start: 20090218, end: 20090221
  4. CIPRALEX [Concomitant]
     Dosage: 10 MG, UNK
     Dates: start: 20080101, end: 20090206
  5. CIPRALEX [Concomitant]
     Dosage: 20 MG, UNK
     Dates: start: 20090207
  6. TEMESTA [Concomitant]
     Dosage: 10 MG, UNK
     Dates: start: 20090101, end: 20090209
  7. TEMESTA [Concomitant]
     Dosage: 7.5 MG, UNK
     Dates: start: 20090210, end: 20090210
  8. TEMESTA [Concomitant]
     Dosage: 6.25 MG, UNK
     Dates: start: 20090211, end: 20090211
  9. TEMESTA [Concomitant]
     Dosage: 5 MG, UNK
     Dates: start: 20090212, end: 20090214
  10. TEMESTA [Concomitant]
     Dosage: 3.75 MG, UNK
     Dates: start: 20090215, end: 20090218
  11. TEMESTA [Concomitant]
     Dosage: 2.5 MG, UNK
     Dates: start: 20090219, end: 20090222
  12. TEMESTA [Concomitant]
     Dosage: 1.25 MG, UNK
     Dates: start: 20090223, end: 20090224
  13. RISPERDAL [Concomitant]
     Dosage: 1 MG, UNK
     Dates: start: 20090216, end: 20090216
  14. RISPERDAL [Concomitant]
     Dosage: 2 MG, UNK
     Dates: start: 20090217, end: 20090219
  15. RISPERDAL [Concomitant]
     Dosage: 2.5 MG, UNK
     Dates: start: 20090220, end: 20090222
  16. RISPERDAL [Concomitant]
     Dosage: 3 MG, UNK
     Dates: start: 20090223, end: 20090226

REACTIONS (7)
  - ALANINE AMINOTRANSFERASE INCREASED [None]
  - HOSPITALISATION [None]
  - INCREASED APPETITE [None]
  - INSOMNIA [None]
  - RESTLESS LEGS SYNDROME [None]
  - RESTLESSNESS [None]
  - WEIGHT INCREASED [None]
